FAERS Safety Report 19985873 (Version 1)
Quarter: 2021Q4

REPORT INFORMATION
  Report Type: Report from Study
  Country: US (occurrence: US)
  Receive Date: 20211022
  Receipt Date: 20211022
  Transmission Date: 20220303
  Serious: Yes (Other)
  Sender: FDA-Public Use
  Company Number: US-GILEAD-2021-0553560

PATIENT
  Sex: Male

DRUGS (4)
  1. AMBRISENTAN [Suspect]
     Active Substance: AMBRISENTAN
     Indication: Product used for unknown indication
     Dosage: 5 MG, QD
     Route: 048
  2. SILDENAFIL [Concomitant]
     Active Substance: SILDENAFIL
  3. ELIQUIS [Concomitant]
     Active Substance: APIXABAN
  4. DILTIAZEM [Concomitant]
     Active Substance: DILTIAZEM

REACTIONS (7)
  - Diarrhoea haemorrhagic [Recovering/Resolving]
  - Oxygen saturation decreased [Not Recovered/Not Resolved]
  - Illness [Not Recovered/Not Resolved]
  - Dizziness [Not Recovered/Not Resolved]
  - Dyspnoea [Not Recovered/Not Resolved]
  - Palpitations [Not Recovered/Not Resolved]
  - Fatigue [Not Recovered/Not Resolved]
